FAERS Safety Report 17069269 (Version 2)
Quarter: 2020Q1

REPORT INFORMATION
  Report Type: Report from Study
  Country: US (occurrence: US)
  Receive Date: 20191125
  Receipt Date: 20200102
  Transmission Date: 20200409
  Serious: No
  Sender: FDA-Public Use
  Company Number: US-SHIRE-US201940501

PATIENT
  Sex: Female

DRUGS (2)
  1. TEDUGLUTIDE [Suspect]
     Active Substance: TEDUGLUTIDE
     Dosage: 2.330 UNIT UNK, 1X/DAY:QD
     Route: 058
     Dates: start: 20171130
  2. TEDUGLUTIDE [Suspect]
     Active Substance: TEDUGLUTIDE
     Indication: PRODUCT USED FOR UNKNOWN INDICATION
     Dosage: 0.28 MILLILITER, 1X/DAY:QD
     Route: 058

REACTIONS (2)
  - Wrong technique in product usage process [Unknown]
  - Weight increased [Not Recovered/Not Resolved]
